FAERS Safety Report 25644643 (Version 1)
Quarter: 2025Q3

REPORT INFORMATION
  Report Type: Spontaneous
  Country: US (occurrence: US)
  Receive Date: 20250805
  Receipt Date: 20250805
  Transmission Date: 20251021
  Serious: Yes (Death, Other)
  Sender: SANOFI AVENTIS
  Company Number: US-DialogSolutions-SAAVPROD-PI807071-C1

PATIENT
  Age: 68 Year
  Sex: Male

DRUGS (4)
  1. ENOXAPARIN SODIUM [Suspect]
     Active Substance: ENOXAPARIN SODIUM
  2. HEPARIN [Suspect]
     Active Substance: HEPARIN SODIUM
  3. OXYGEN [Concomitant]
     Active Substance: OXYGEN
  4. APIXABAN [Concomitant]
     Active Substance: APIXABAN
     Indication: Atrial fibrillation

REACTIONS (4)
  - Pulmonary haemorrhage [Fatal]
  - Bronchial haemorrhage [Fatal]
  - Haemoptysis [Fatal]
  - Thrombosis [Fatal]
